FAERS Safety Report 4330240-1 (Version None)
Quarter: 2004Q1

REPORT INFORMATION
  Report Type: 
  Country: None (occurrence: None)
  Receive Date: 20040329
  Receipt Date: 20040312
  Transmission Date: 20041129
  Serious: Yes (Hospitalization)
  Sender: FDA-Public Use
  Company Number: 2004017122

PATIENT
  Age: 62 Year
  Sex: Male
  Weight: 65 kg

DRUGS (6)
  1. NORVASC [Suspect]
     Indication: HYPERTENSION
     Dosage: 10 MG (BID), ORAL
     Route: 048
     Dates: start: 20020601
  2. ACETYLSALICYLIC ACID SRT [Suspect]
     Indication: CORONARY ARTERY DISEASE
     Dosage: 100 MG (DAILY), ORAL
     Route: 048
     Dates: start: 20030801, end: 20031205
  3. CANDESARTAN CILEXETIL (CANDESARTAN CILEXETIL) [Suspect]
     Indication: HYPERTENSION
     Dosage: 16 MG (DAILY), ORAL
     Route: 048
     Dates: start: 19900101, end: 20031205
  4. PHENPROCOUMON (PHENPROCOUMON) [Suspect]
     Indication: THROMBOSIS
     Dosage: 1.5 MG (DAILY), ORAL
     Route: 048
     Dates: start: 19900101, end: 20031205
  5. METROPROLOL SUCCINATE (METOPROLOL SUCCINATE) [Concomitant]
  6. PANTOPRAZOLE SODIUM (PANTOPRAZOLE SODIUM) [Concomitant]

REACTIONS (6)
  - CORONARY ARTERY DISEASE [None]
  - DRUG INTERACTION [None]
  - EPISTAXIS [None]
  - GASTRIC ULCER [None]
  - GASTROINTESTINAL HAEMORRHAGE [None]
  - HYPERTENSION [None]
